FAERS Safety Report 5157586-1 (Version None)
Quarter: 2006Q4

REPORT INFORMATION
  Report Type: 
  Country: None (occurrence: None)
  Receive Date: 20061127
  Receipt Date: 20061123
  Transmission Date: 20070319
  Serious: Yes (Other)
  Sender: FDA-Public Use
  Company Number: DE-GLAXOSMITHKLINE-D0051554A

PATIENT
  Age: 64 Year
  Sex: Female
  Weight: 80 kg

DRUGS (7)
  1. QUILONUM RETARD [Suspect]
     Dosage: 6750MG SINGLE DOSE
     Route: 048
     Dates: start: 20061122, end: 20061122
  2. AMITRIPTYLIN [Suspect]
     Dosage: 1350MG SINGLE DOSE
     Route: 048
     Dates: start: 20061122, end: 20061122
  3. ESCITALOPRAM OXALATE [Suspect]
     Dosage: 140MG SINGLE DOSE
     Route: 048
     Dates: start: 20061122, end: 20061122
  4. EUTHYROX [Suspect]
     Dosage: 2.4MG SINGLE DOSE
     Route: 048
     Dates: start: 20061122, end: 20061122
  5. FLUANXOL [Suspect]
     Dosage: 100MG SINGLE DOSE
     Route: 048
     Dates: start: 20061122, end: 20061122
  6. GLIMEPIRIDE [Suspect]
     Route: 048
     Dates: start: 20061122, end: 20061122
  7. GLUCOPHAGE [Suspect]
     Dosage: 10G SINGLE DOSE
     Route: 048
     Dates: start: 20061122, end: 20061122

REACTIONS (3)
  - INTENTIONAL OVERDOSE [None]
  - SOPOR [None]
  - SUICIDE ATTEMPT [None]
